FAERS Safety Report 9053962 (Version 1)
Quarter: 2013Q1

REPORT INFORMATION
  Report Type: Spontaneous
  Country: US (occurrence: None)
  Receive Date: 20130201
  Receipt Date: 20130201
  Transmission Date: 20140127
  Serious: Yes (Hospitalization)
  Sender: FDA-Public Use
  Company Number: None

PATIENT
  Age: 70 Year
  Sex: Male
  Weight: 94.8 kg

DRUGS (2)
  1. GABAPENTIN [Suspect]
     Indication: PAIN
     Route: 048
     Dates: start: 20120718, end: 20121117
  2. CYCLOBENZAPRINE [Suspect]
     Route: 048
     Dates: start: 20121002, end: 20121117

REACTIONS (3)
  - Dyspnoea [None]
  - Overdose [None]
  - Mental status changes [None]
